FAERS Safety Report 17188341 (Version 2)
Quarter: 2020Q1

REPORT INFORMATION
  Report Type: Report from Study
  Country: US (occurrence: US)
  Receive Date: 20191221
  Receipt Date: 20200110
  Transmission Date: 20200409
  Serious: No
  Sender: FDA-Public Use
  Company Number: NVSC2019US027639

PATIENT
  Age: 3 Year
  Sex: Female

DRUGS (1)
  1. ILARIS [Suspect]
     Active Substance: CANAKINUMAB
     Indication: STILL^S DISEASE
     Dosage: 50 MG, Q8 WEEKS
     Route: 058
     Dates: start: 20180919

REACTIONS (1)
  - Inappropriate schedule of product administration [Unknown]
